FAERS Safety Report 6790435-4 (Version None)
Quarter: 2010Q2

REPORT INFORMATION
  Report Type: 
  Country: None (occurrence: None)
  Receive Date: 20100624
  Receipt Date: 20100617
  Transmission Date: 20101027
  Serious: Yes (Other)
  Sender: FDA-Public Use
  Company Number: JP-MILLENNIUM PHARMACEUTICALS, INC.-2010-03115

PATIENT

DRUGS (11)
  1. VELCADE [Suspect]
     Indication: MULTIPLE MYELOMA
     Dosage: 1.85 MG, CYCLIC
     Route: 042
     Dates: start: 20090907, end: 20091008
  2. VELCADE [Suspect]
     Dosage: 1.81 MG, CYCLIC
     Route: 042
     Dates: start: 20091019, end: 20091120
  3. VELCADE [Suspect]
     Dosage: 1.79 MG, CYCLIC
     Route: 042
     Dates: start: 20091214, end: 20091224
  4. VELCADE [Suspect]
     Dosage: 1.35 MG, CYCLIC
     Route: 042
     Dates: start: 20100118, end: 20100329
  5. VELCADE [Suspect]
     Dosage: 1.33 MG, CYCLIC
     Route: 042
     Dates: start: 20100419, end: 20100517
  6. VELCADE [Suspect]
     Dosage: 1.30 MG, CYCLIC
     Route: 042
     Dates: start: 20100531, end: 20100607
  7. MELPHALAN HYDROCHLORIDE [Suspect]
     Indication: MULTIPLE MYELOMA
     Dosage: 12 MG, UNK
     Route: 048
     Dates: start: 20090907, end: 20091218
  8. MELPHALAN HYDROCHLORIDE [Suspect]
     Dosage: 8 UNK, UNK
     Route: 048
     Dates: start: 20100118, end: 20100601
  9. PREDNISONE [Suspect]
     Indication: MULTIPLE MYELOMA
     Dosage: 85 MG, UNK
     Route: 048
     Dates: start: 20090907, end: 20090910
  10. PREDNISONE [Suspect]
     Dosage: 80 MG, UNK
     Route: 048
     Dates: start: 20091019, end: 20100304
  11. PREDNISONE [Suspect]
     Dosage: 75 MG, UNK
     Route: 048
     Dates: start: 20100419, end: 20100601

REACTIONS (1)
  - DEPRESSION [None]
